FAERS Safety Report 6920234-1 (Version None)
Quarter: 2010Q3

REPORT INFORMATION
  Report Type: 
  Country: None (occurrence: None)
  Receive Date: 20100809
  Receipt Date: 20100609
  Transmission Date: 20110219
  Serious: Yes (Other)
  Sender: FDA-Public Use
  Company Number: CR10-0209

PATIENT
  Age: 41 Year
  Sex: Female
  Weight: 67.1324 kg

DRUGS (1)
  1. PRIMATENE MIST [Suspect]
     Indication: ASTHMA
     Dates: start: 20100517

REACTIONS (6)
  - ASTHMA [None]
  - CONDITION AGGRAVATED [None]
  - DRUG INEFFECTIVE [None]
  - NAUSEA [None]
  - RHINITIS ALLERGIC [None]
  - VOMITING [None]
